FAERS Safety Report 7623715-0 (Version None)
Quarter: 2011Q3

REPORT INFORMATION
  Report Type: 
  Country: None (occurrence: None)
  Receive Date: 20110720
  Receipt Date: 20110714
  Transmission Date: 20111222
  Serious: Yes (Death, Hospitalization)
  Sender: FDA-Public Use
  Company Number: US-GLAXOSMITHKLINE-A0925385A

PATIENT
  Age: 50 Year
  Sex: Male
  Weight: 86.2 kg

DRUGS (1)
  1. FLOLAN [Suspect]
     Indication: PULMONARY ARTERIAL HYPERTENSION
     Dosage: 30NGKM UNKNOWN
     Route: 065
     Dates: start: 20100806

REACTIONS (3)
  - PORTAL SHUNT [None]
  - HEPATIC FAILURE [None]
  - HERNIA [None]
